FAERS Safety Report 5890528-X (Version None)
Quarter: 2008Q3

REPORT INFORMATION
  Report Type: 
  Country: None (occurrence: None)
  Receive Date: 20080922
  Receipt Date: 20080915
  Transmission Date: 20090109
  Serious: Yes (Other)
  Sender: FDA-Public Use
  Company Number: BR-ABBOTT-08P-020-0472058-00

PATIENT
  Age: 62 Year
  Sex: Female
  Weight: 65 kg

DRUGS (5)
  1. HUMIRA [Suspect]
     Indication: RHEUMATOID ARTHRITIS
     Route: 058
  2. HUMIRA [Suspect]
  3. METHOTREXATE [Concomitant]
     Indication: ANTIINFLAMMATORY THERAPY
     Route: 048
  4. MELOXICAM [Concomitant]
     Indication: PAIN
     Route: 048
  5. DIMENHYDRINATE [Concomitant]
     Indication: VERTIGO
     Route: 048

REACTIONS (6)
  - DIZZINESS [None]
  - DRUG INEFFECTIVE [None]
  - LIMB INJURY [None]
  - MUSCLE ATROPHY [None]
  - MUSCLE FATIGUE [None]
  - PAIN IN EXTREMITY [None]
